FAERS Safety Report 9736880 (Version 1)
Quarter: 2013Q4

REPORT INFORMATION
  Report Type: Spontaneous
  Country: US (occurrence: US)
  Receive Date: 20131206
  Receipt Date: 20131206
  Transmission Date: 20140711
  Serious: No
  Sender: FDA-Public Use
  Company Number: US-BIOGENIDEC-2013BI093386

PATIENT
  Age: 45 Year
  Sex: Female

DRUGS (6)
  1. TECFIDERA [Suspect]
     Indication: MULTIPLE SCLEROSIS
     Route: 048
     Dates: start: 20130828, end: 20130903
  2. TECFIDERA [Suspect]
     Indication: MULTIPLE SCLEROSIS
     Route: 048
     Dates: start: 20130904, end: 20130920
  3. LISINOPRIL [Concomitant]
  4. HCTZ [Concomitant]
  5. TYLENOL [Concomitant]
  6. VITAMIN B [Concomitant]

REACTIONS (2)
  - Hypersensitivity [Recovered/Resolved]
  - Local swelling [Unknown]
